FAERS Safety Report 7308888-1 (Version None)
Quarter: 2011Q1

REPORT INFORMATION
  Report Type: 
  Country: None (occurrence: None)
  Receive Date: 20110223
  Receipt Date: 20100208
  Transmission Date: 20110831
  Serious: Yes (Hospitalization)
  Sender: FDA-Public Use
  Company Number: US-NOVOPROD-304246

PATIENT
  Sex: Female

DRUGS (1)
  1. NOVOSEVEN [Suspect]
     Indication: HAEMORRHAGE
     Dosage: 70 UG/KG, UNK
     Route: 042

REACTIONS (3)
  - DISSEMINATED INTRAVASCULAR COAGULATION [None]
  - VENA CAVA THROMBOSIS [None]
  - DEEP VEIN THROMBOSIS [None]
